FAERS Safety Report 18666282 (Version 1)
Quarter: 2020Q4

REPORT INFORMATION
  Report Type: Report from Study
  Country: US (occurrence: US)
  Receive Date: 20201226
  Receipt Date: 20201226
  Transmission Date: 20210114
  Serious: Yes (Other)
  Sender: FDA-Public Use
  Company Number: US-TEVA-2020-US-1850430

PATIENT
  Age: 28 Year
  Sex: Female

DRUGS (1)
  1. COPAXONE [Suspect]
     Active Substance: GLATIRAMER ACETATE
     Indication: MULTIPLE SCLEROSIS
     Dosage: 17.1429 MILLIGRAM DAILY;
     Route: 058
     Dates: start: 20200802

REACTIONS (7)
  - Confusional state [Recovering/Resolving]
  - Cognitive disorder [Not Recovered/Not Resolved]
  - Stress at work [Unknown]
  - Disturbance in attention [Recovering/Resolving]
  - Eye disorder [Recovering/Resolving]
  - Visual impairment [Not Recovered/Not Resolved]
  - Sleep disorder [Not Recovered/Not Resolved]

NARRATIVE: CASE EVENT DATE: 2020
